FAERS Safety Report 7381701-2 (Version None)
Quarter: 2011Q1

REPORT INFORMATION
  Report Type: 
  Country: None (occurrence: None)
  Receive Date: 20110329
  Receipt Date: 20101020
  Transmission Date: 20110831
  Serious: Yes (Other)
  Sender: FDA-Public Use
  Company Number: US-BAYER-200941337NA

PATIENT
  Sex: Female
  Weight: 43 kg

DRUGS (5)
  1. YASMIN [Suspect]
     Dates: start: 20070101
  2. ACETAMINOPHEN [Concomitant]
  3. NYQUIL [Concomitant]
  4. YAZ [Suspect]
     Dates: start: 20060101, end: 20071001
  5. MOTRIN [Concomitant]
     Dates: start: 20051101

REACTIONS (4)
  - BILIARY DYSKINESIA [None]
  - PAIN [None]
  - GALLBLADDER DISORDER [None]
  - CHOLECYSTITIS CHRONIC [None]
